FAERS Safety Report 4736366-2 (Version None)
Quarter: 2005Q3

REPORT INFORMATION
  Report Type: 
  Country: None (occurrence: None)
  Receive Date: 20050802
  Receipt Date: 20050720
  Transmission Date: 20060218
  Serious: Yes (Other)
  Sender: FDA-Public Use
  Company Number: 2005080643

PATIENT
  Sex: Female
  Weight: 88.4514 kg

DRUGS (7)
  1. CELEBREX [Suspect]
     Indication: OSTEOARTHRITIS
     Dosage: 200 MG (200 MG, 1 IN 1 D) ORAL
     Route: 048
     Dates: start: 20031117
  2. AMBIEN [Concomitant]
  3. LEXAPRO [Concomitant]
  4. LORAZEPAM [Concomitant]
  5. PROVIGIL [Concomitant]
  6. TYLENOL W/ CODEINE [Concomitant]
  7. DURAGESIC-100 [Concomitant]

REACTIONS (15)
  - ABDOMINAL DISCOMFORT [None]
  - ABDOMINAL HERNIA [None]
  - ANEURYSM [None]
  - BODY HEIGHT DECREASED [None]
  - CALCINOSIS [None]
  - CARDIOVASCULAR DISORDER [None]
  - CERVICAL DYSPLASIA [None]
  - LIMB DISCOMFORT [None]
  - MASTECTOMY [None]
  - METRORRHAGIA [None]
  - PAIN IN EXTREMITY [None]
  - PELVIC HAEMATOMA [None]
  - PELVIC MASS [None]
  - VAGINAL DYSPLASIA [None]
  - VAGINAL HAEMORRHAGE [None]
